FAERS Safety Report 8826464 (Version 1)
Quarter: 2012Q4

REPORT INFORMATION
  Report Type: 
  Country: IN (occurrence: IN)
  Receive Date: 20121005
  Receipt Date: 20121005
  Transmission Date: 20130627
  Serious: Yes (Hospitalization)
  Sender: FDA-Public Use
  Company Number: PHHY2012IN084918

PATIENT
  Age: 50 Year
  Sex: Female

DRUGS (4)
  1. MYFORTIC [Suspect]
     Indication: IMMUNOSUPPRESSION
     Route: 048
  2. PREDNISOLONE [Concomitant]
     Indication: IMMUNOSUPPRESSION
  3. TACROLIMUS [Concomitant]
     Indication: IMMUNOSUPPRESSION
  4. COTRIMOXAZOL [Concomitant]
     Route: 048

REACTIONS (12)
  - Aortic valve incompetence [Unknown]
  - Cardiac valve vegetation [Unknown]
  - Cardiomegaly [Unknown]
  - Cough [Unknown]
  - Fatigue [Unknown]
  - Asthenia [Unknown]
  - Tachycardia [Unknown]
  - Joint swelling [Recovering/Resolving]
  - Cardiac murmur [Unknown]
  - Heart rate increased [Unknown]
  - Fungal infection [Recovering/Resolving]
  - Albuminuria [Unknown]
